FAERS Safety Report 9695176 (Version 1)
Quarter: 2013Q4

REPORT INFORMATION
  Report Type: Spontaneous
  Country: AU (occurrence: AU)
  Receive Date: 20131119
  Receipt Date: 20131119
  Transmission Date: 20140711
  Serious: Yes (Other)
  Sender: FDA-Public Use
  Company Number: AU-ABBVIE-13P-008-1158220-00

PATIENT
  Age: 51 Year
  Sex: Female

DRUGS (3)
  1. EPILIM [Suspect]
     Indication: PRODUCT USED FOR UNKNOWN INDICATION
     Route: 065
  2. LITHICARB [Suspect]
     Indication: PRODUCT USED FOR UNKNOWN INDICATION
     Route: 065
  3. TRANYLCYPROMINE SULFATE [Suspect]
     Indication: PRODUCT USED FOR UNKNOWN INDICATION
     Route: 065

REACTIONS (7)
  - Serotonin syndrome [Unknown]
  - Hyperhidrosis [Unknown]
  - Hypertonia [Unknown]
  - Hypotension [Unknown]
  - Pyrexia [Unknown]
  - Confusional state [Unknown]
  - Tremor [Unknown]
